FAERS Safety Report 5798464-4 (Version None)
Quarter: 2008Q3

REPORT INFORMATION
  Report Type: 
  Country: None (occurrence: None)
  Receive Date: 20080702
  Receipt Date: 20080623
  Transmission Date: 20090109
  Serious: Yes (Hospitalization, Other)
  Sender: FDA-Public Use
  Company Number: PHHY2008FR12196

PATIENT
  Sex: Female

DRUGS (9)
  1. VOLTAREN [Suspect]
     Indication: ANKYLOSING SPONDYLITIS
     Dosage: UNK
     Route: 048
     Dates: end: 20080410
  2. LASIX [Interacting]
     Indication: CARDIAC FAILURE
     Dosage: 20 MG, QD
     Route: 048
     Dates: end: 20080410
  3. CORDARONE [Concomitant]
  4. PREVISCAN [Concomitant]
  5. COVERSYL [Interacting]
  6. ASPIRIN [Concomitant]
  7. ELISOR [Concomitant]
  8. ATENOLOL [Interacting]
  9. LORAZEPAM [Concomitant]

REACTIONS (5)
  - BLOOD CREATININE INCREASED [None]
  - CHEST PAIN [None]
  - HYPONATRAEMIA [None]
  - RENAL FAILURE ACUTE [None]
  - STENT PLACEMENT [None]
